FAERS Safety Report 4745632-6 (Version None)
Quarter: 2005Q3

REPORT INFORMATION
  Report Type: 
  Country: None (occurrence: None)
  Receive Date: 20050815
  Receipt Date: 20050727
  Transmission Date: 20060218
  Serious: Yes (Hospitalization)
  Sender: FDA-Public Use
  Company Number: ST-2005-008519

PATIENT
  Age: 67 Year
  Sex: Male

DRUGS (21)
  1. OLMESARTAN [Suspect]
     Indication: DIABETES MELLITUS NON-INSULIN-DEPENDENT
     Dosage: 10 MG QD PO
     Route: 048
     Dates: start: 20041029, end: 20041125
  2. OLMESARTAN [Suspect]
     Indication: DIABETIC NEPHROPATHY
     Dosage: 10 MG QD PO
     Route: 048
     Dates: start: 20041029, end: 20041125
  3. OLMESARTAN [Suspect]
     Indication: DIABETES MELLITUS NON-INSULIN-DEPENDENT
     Dosage: 20 MG QD PO
     Route: 048
     Dates: start: 20041019, end: 20041125
  4. OLMESARTAN [Suspect]
     Indication: DIABETIC NEPHROPATHY
     Dosage: 20 MG QD PO
     Route: 048
     Dates: start: 20041019, end: 20041125
  5. OLMESARTAN [Suspect]
     Indication: DIABETES MELLITUS NON-INSULIN-DEPENDENT
     Dosage: 40 MG QD PO
     Route: 048
     Dates: start: 20041223, end: 20050725
  6. OLMESARTAN [Suspect]
     Indication: DIABETIC NEPHROPATHY
     Dosage: 40 MG QD PO
     Route: 048
     Dates: start: 20041223, end: 20050725
  7. OLMESARTAN [Suspect]
     Indication: DIABETES MELLITUS NON-INSULIN-DEPENDENT
     Dosage: 20 MG QD PO
     Route: 048
     Dates: start: 20050726
  8. OLMESARTAN [Suspect]
     Indication: DIABETIC NEPHROPATHY
     Dosage: 20 MG QD PO
     Route: 048
     Dates: start: 20050726
  9. PLACEBO [Suspect]
     Dosage: PLACEBO
     Dates: start: 20040803, end: 20041028
  10. PLACEBO [Suspect]
     Dosage: 10 MG QD PO
     Route: 048
     Dates: start: 20041029, end: 20041125
  11. PLACEBO [Suspect]
     Dosage: 20 MG QD PO
     Route: 048
     Dates: start: 20041126, end: 20041222
  12. PLACEBO [Suspect]
     Dosage: 40 MG QD PO
     Route: 048
     Dates: start: 20041223, end: 20050725
  13. PLACEBO [Suspect]
     Dosage: 20 MG QD PO
     Route: 048
     Dates: start: 20050726
  14. GLUCOPHAGE [Concomitant]
  15. ACERTIL [Concomitant]
  16. ADALAT [Concomitant]
  17. HYTRIN [Concomitant]
  18. AQUEOUS CREAM [Concomitant]
  19. NATRILIX [Concomitant]
  20. ALDOMET [Concomitant]
  21. DIAMICRON MR [Concomitant]

REACTIONS (1)
  - ORTHOSTATIC HYPOTENSION [None]
